FAERS Safety Report 10226943 (Version 2)
Quarter: 2014Q2

REPORT INFORMATION
  Report Type: Spontaneous
  Country: US (occurrence: US)
  Receive Date: 20140610
  Receipt Date: 20140627
  Transmission Date: 20141212
  Serious: No
  Sender: FDA-Public Use
  Company Number: US-009507513-1406USA000752

PATIENT
  Age: 72 Year
  Sex: Female

DRUGS (1)
  1. DULERA [Suspect]
     Indication: BRONCHITIS
     Dosage: INHALE TWO PUFFS TWICE A DAY
     Route: 055

REACTIONS (3)
  - Wheezing [Not Recovered/Not Resolved]
  - Drug dose omission [Unknown]
  - Product quality issue [Unknown]
